FAERS Safety Report 5692489-5 (Version None)
Quarter: 2008Q2

REPORT INFORMATION
  Report Type: 
  Country: None (occurrence: None)
  Receive Date: 20080328
  Receipt Date: 20080213
  Transmission Date: 20081010
  Serious: No
  Sender: FDA-Public Use
  Company Number: US-WYE-H02680708

PATIENT
  Age: 80 Year
  Sex: Male
  Weight: 83.99 kg

DRUGS (6)
  1. TORISEL [Suspect]
     Indication: RENAL CELL CARCINOMA
     Dosage: 25 MG - FREQUENCY NOT PROVIDED.  THE PATIENT HAS RECEIVED 24 INFUSIONS, INTRAVENOUS
     Route: 042
     Dates: start: 20070821
  2. PERCOCET [Concomitant]
  3. ZOCOR [Concomitant]
  4. AGGRENOX [Concomitant]
  5. BENADRYL [Concomitant]
  6. SENOKOT [Concomitant]

REACTIONS (2)
  - RASH MACULO-PAPULAR [None]
  - RASH PRURITIC [None]
